FAERS Safety Report 10057070 (Version 1)
Quarter: 2014Q2

REPORT INFORMATION
  Report Type: Spontaneous
  Country: AU (occurrence: AU)
  Receive Date: 20140403
  Receipt Date: 20140403
  Transmission Date: 20141212
  Serious: Yes (Other)
  Sender: FDA-Public Use
  Company Number: AU-ELI_LILLY_AND_COMPANY-AU201403010525

PATIENT
  Age: 54 Year
  Sex: Female
  Weight: 95 kg

DRUGS (6)
  1. CYMBALTA [Suspect]
     Indication: DEPRESSION
     Dosage: 60 MG, QD
     Route: 065
     Dates: start: 20130515, end: 20130725
  2. CRESTOR [Suspect]
     Indication: METABOLIC DISORDER
     Dosage: UNK UNK, UNKNOWN
     Route: 065
     Dates: end: 20130718
  3. NEXIUM                             /01479302/ [Suspect]
     Indication: OESOPHAGEAL DISORDER
     Dosage: 20 MG, UNKNOWN
     Route: 065
     Dates: start: 20130515
  4. CELEBREX [Concomitant]
  5. FELDENE [Concomitant]
  6. THYROXINE SODIUM [Concomitant]

REACTIONS (5)
  - Excoriation [Recovered/Resolved]
  - Rash erythematous [Recovered/Resolved]
  - Fatigue [Recovered/Resolved]
  - Myalgia [Recovered/Resolved]
  - Blood creatine phosphokinase increased [Recovered/Resolved]
